FAERS Safety Report 19101885 (Version 1)
Quarter: 2021Q2

REPORT INFORMATION
  Report Type: Spontaneous
  Country: US (occurrence: US)
  Receive Date: 20210407
  Receipt Date: 20210407
  Transmission Date: 20210717
  Serious: Yes (Other)
  Sender: FDA-Public Use
  Company Number: US-BRISTOL-MYERS SQUIBB COMPANY-BMS-2021-032821

PATIENT
  Age: 55 Year
  Sex: Male

DRUGS (2)
  1. NIVOLUMAB [Suspect]
     Active Substance: NIVOLUMAB
     Indication: EXTRAMAMMARY PAGET^S DISEASE
     Dosage: 3 MILLIGRAM/KILOGRAM, Q3WK
     Route: 065
  2. IPILIMUMAB [Suspect]
     Active Substance: IPILIMUMAB
     Indication: EXTRAMAMMARY PAGET^S DISEASE
     Dosage: 1 MILLIGRAM/KILOGRAM, Q3WK
     Route: 065

REACTIONS (3)
  - Intentional product use issue [Unknown]
  - Tumour pseudoprogression [Unknown]
  - Hepatitis [Unknown]
